FAERS Safety Report 4543275-0 (Version None)
Quarter: 2004Q4

REPORT INFORMATION
  Report Type: 
  Country: None (occurrence: None)
  Receive Date: 20041229
  Receipt Date: 20041215
  Transmission Date: 20050328
  Serious: Yes (Hospitalization)
  Sender: FDA-Public Use
  Company Number: BR-2004-036234

PATIENT
  Age: 46 Year
  Sex: Female

DRUGS (1)
  1. BETAFERON (INTERFERON BETA-1B) INJECTION, 250 UG [Suspect]
     Indication: MULTIPLE SCLEROSIS
     Dosage: 8 MIU, EVERY 2D, SUBCUTANEOUS
     Route: 058
     Dates: start: 20040930

REACTIONS (16)
  - ABDOMINAL PAIN UPPER [None]
  - ALOPECIA [None]
  - DERMATITIS BULLOUS [None]
  - DYSKINESIA [None]
  - HEPATIC STEATOSIS [None]
  - HEPATITIS [None]
  - HIRSUTISM [None]
  - KIDNEY ENLARGEMENT [None]
  - LABORATORY TEST ABNORMAL [None]
  - MICTURITION FREQUENCY DECREASED [None]
  - PAIN [None]
  - PAIN IN EXTREMITY [None]
  - PANCREATITIS ACUTE [None]
  - PERIUMBILICAL ABSCESS [None]
  - RENAL IMPAIRMENT [None]
  - SPLEEN DISORDER [None]
